FAERS Safety Report 16357425 (Version 1)
Quarter: 2019Q2

REPORT INFORMATION
  Report Type: Spontaneous
  Country: ES (occurrence: ES)
  Receive Date: 20190527
  Receipt Date: 20190527
  Transmission Date: 20190711
  Serious: Yes (Other)
  Sender: FDA-Public Use
  Company Number: ES-ELI_LILLY_AND_COMPANY-ES201905007075

PATIENT
  Age: 74 Year
  Sex: Female

DRUGS (5)
  1. CYMBALTA [Concomitant]
     Active Substance: DULOXETINE HYDROCHLORIDE
     Indication: AGORAPHOBIA
     Dosage: 60 MG, DAILY
     Route: 048
     Dates: start: 20100604
  2. DAFIRO HCT [Concomitant]
     Active Substance: AMLODIPINE\HYDROCHLOROTHIAZIDE\VALSARTAN
     Indication: ESSENTIAL HYPERTENSION
     Dosage: 1 DOSAGE FORM, DAILY
     Route: 048
     Dates: start: 20110623
  3. ATORVASTATINA [ATORVASTATIN CALCIUM] [Concomitant]
     Indication: HYPERCHOLESTEROLAEMIA
     Dosage: 40 MG, DAILY
     Route: 048
     Dates: start: 20140319
  4. CADELIUS [CALCIUM CARBONATE;COLECALCIFEROL] [Concomitant]
     Indication: OSTEOPOROSIS
     Dosage: 1 DOSAGE FORM, DAILY
     Route: 048
     Dates: start: 20181205
  5. FORSTEO 250UG/ML [Suspect]
     Active Substance: TERIPARATIDE
     Indication: SPINAL FRACTURE
     Dosage: 1 DOSAGE FORM, DAILY
     Route: 058
     Dates: start: 20190315, end: 201903

REACTIONS (4)
  - Pain in jaw [Recovering/Resolving]
  - Myalgia [Recovering/Resolving]
  - Off label use [Unknown]
  - Toothache [Recovering/Resolving]

NARRATIVE: CASE EVENT DATE: 201903
